FAERS Safety Report 15621978 (Version 1)
Quarter: 2018Q4

REPORT INFORMATION
  Report Type: Spontaneous
  Country: DE (occurrence: DE)
  Receive Date: 20181115
  Receipt Date: 20181115
  Transmission Date: 20190205
  Serious: Yes (Hospitalization, Other)
  Sender: FDA-Public Use
  Company Number: DE-PFIZER INC-2018464218

PATIENT
  Age: 68 Year
  Sex: Male
  Weight: 75 kg

DRUGS (2)
  1. METAMIZOLE [Suspect]
     Active Substance: METAMIZOLE
     Dosage: UNK UNK, AS NEEDED
     Dates: start: 201408, end: 201411
  2. ATORVASTATIN CALCIUM. [Suspect]
     Active Substance: ATORVASTATIN CALCIUM

REACTIONS (2)
  - Hepatitis acute [Recovered/Resolved]
  - Jaundice [Recovered/Resolved]

NARRATIVE: CASE EVENT DATE: 20141118
